FAERS Safety Report 4597863-6 (Version None)
Quarter: 2005Q1

REPORT INFORMATION
  Report Type: 
  Country: None (occurrence: None)
  Receive Date: 20050301
  Receipt Date: 20050214
  Transmission Date: 20050727
  Serious: Yes (Hospitalization)
  Sender: FDA-Public Use
  Company Number: BR-2005-002116

PATIENT
  Age: 38 Year
  Sex: Female

DRUGS (1)
  1. MIRENA [Suspect]
     Indication: CONTRACEPTION
     Dosage: 20 UG/DAY, CONT, INTRA-UTERINE
     Route: 015
     Dates: start: 20050104, end: 20050118

REACTIONS (9)
  - ANGIONEUROTIC OEDEMA [None]
  - AURICULAR SWELLING [None]
  - HYPERSENSITIVITY [None]
  - HYPOTENSION [None]
  - LARYNGEAL OEDEMA [None]
  - LOCAL SWELLING [None]
  - NAUSEA [None]
  - PRURITUS GENERALISED [None]
  - VOMITING [None]
